FAERS Safety Report 10060997 (Version 1)
Quarter: 2014Q2

REPORT INFORMATION
  Report Type: Spontaneous
  Country: US (occurrence: US)
  Receive Date: 20140405
  Receipt Date: 20140405
  Transmission Date: 20141212
  Serious: Yes (Hospitalization)
  Sender: FDA-Public Use
  Company Number: 2014SP001807

PATIENT
  Age: 72 Year
  Sex: Male
  Weight: 98 kg

DRUGS (43)
  1. GEMCITABINE [Suspect]
     Indication: BLADDER CANCER
     Route: 042
     Dates: start: 20130227
  2. CISPLATIN [Suspect]
     Indication: BLADDER CANCER
     Route: 042
     Dates: start: 20130227
  3. ERIBULIN [Suspect]
     Indication: BLADDER CANCER
     Route: 042
     Dates: start: 20130227
  4. ADVAIR [Concomitant]
     Indication: CHRONIC OBSTRUCTIVE PULMONARY DISEASE
     Route: 048
  5. ADVAIR [Concomitant]
     Indication: ASTHMA
     Route: 048
  6. MEFENAMIC ACID [Concomitant]
     Indication: PAIN
     Route: 048
  7. INSULIN GLULISINE [Concomitant]
     Indication: DIABETES MELLITUS
     Dates: start: 201211
  8. AZELASTINE HYDROCHLORIDE [Concomitant]
     Indication: SEASONAL ALLERGY
     Route: 045
     Dates: start: 2010
  9. AZELASTINE HYDROCHLORIDE [Concomitant]
     Indication: ASTHMA
     Route: 045
     Dates: start: 2010
  10. WARFARIN [Concomitant]
     Indication: ATRIAL FIBRILLATION
     Route: 048
     Dates: start: 2011
  11. ROSUVASTATIN CALCIUM [Concomitant]
     Indication: HYPERCHOLESTEROLAEMIA
     Route: 048
     Dates: start: 201112
  12. CYANOCOBALAMIN [Concomitant]
     Indication: VITAMIN SUPPLEMENTATION
     Route: 048
     Dates: start: 2011
  13. COMBIVENT [Concomitant]
     Indication: ASTHMA
     Dates: start: 2010
  14. COMBIVENT [Concomitant]
     Indication: CHRONIC OBSTRUCTIVE PULMONARY DISEASE
     Dates: start: 2010
  15. AZELAIC ACID [Concomitant]
     Indication: ROSACEA
     Route: 061
     Dates: start: 2009
  16. GABAPENTIN [Concomitant]
     Indication: DIABETIC NEUROPATHY
     Route: 048
     Dates: start: 201210
  17. METFORMIN HYDROCHLORIDE [Concomitant]
     Indication: DIABETES MELLITUS
     Route: 048
     Dates: start: 1992
  18. HYDROCODONE [Concomitant]
     Indication: PAIN
     Route: 048
     Dates: start: 20120919
  19. HYDROCORTISONE ACETATE [Concomitant]
     Indication: HAEMORRHOIDS
     Route: 054
     Dates: start: 20130212
  20. INSULIN DETEMIR [Concomitant]
     Indication: DIABETES MELLITUS
     Route: 058
     Dates: start: 201112
  21. DOXYCYCLINE [Concomitant]
     Indication: ROSACEA
     Route: 048
     Dates: start: 2011
  22. SALBUTAMOL SULFATE [Concomitant]
     Indication: CHRONIC OBSTRUCTIVE PULMONARY DISEASE
     Dates: start: 2010
  23. SALBUTAMOL SULFATE [Concomitant]
     Indication: ASTHMA
     Dates: start: 2010
  24. PANTOPRAZOLE SODIUM SESQUIHYDRATE [Concomitant]
     Indication: GASTROOESOPHAGEAL REFLUX DISEASE
     Route: 048
     Dates: start: 2002
  25. FLUOXETINE HYDROCHLORIDE [Concomitant]
     Indication: DEPRESSION
     Route: 048
     Dates: start: 2002
  26. METOPROLOL SUCCINATE [Concomitant]
     Indication: HYPERTENSION
     Route: 048
     Dates: start: 201103
  27. PARACETAMOL [Concomitant]
     Indication: PAIN
     Route: 048
     Dates: start: 20130212
  28. ERGOCALCIFEROL [Concomitant]
     Indication: VITAMIN SUPPLEMENTATION
     Route: 048
     Dates: start: 2012
  29. MACROGOL [Concomitant]
     Indication: CONSTIPATION
     Route: 048
     Dates: start: 20130212
  30. BISACODYL [Concomitant]
     Indication: CONSTIPATION
     Route: 048
     Dates: start: 20130212
  31. PROCHLORPERAZINE [Concomitant]
     Indication: PROPHYLAXIS
     Route: 048
     Dates: start: 20130227
  32. ONDANSETRON [Concomitant]
     Indication: PROPHYLAXIS
     Route: 048
     Dates: start: 20130227
  33. DEXAMETHASONE [Concomitant]
     Indication: PROPHYLAXIS
     Route: 048
     Dates: start: 20130227
  34. FUROSEMIDE [Concomitant]
     Indication: PROPHYLAXIS
     Route: 048
     Dates: start: 20130227
  35. KAOPECTATE /00140201/ [Concomitant]
     Indication: DIARRHOEA
     Route: 048
     Dates: start: 20130228
  36. LOPERAMIDE HYDROCHLORIDE [Concomitant]
     Indication: DIARRHOEA
     Route: 048
     Dates: start: 20130228
  37. BENADRYL ALLERGY /01454801/ [Concomitant]
     Indication: SEASONAL ALLERGY
     Route: 048
     Dates: start: 20120814, end: 20130228
  38. ONDANSETRON [Concomitant]
     Indication: NAUSEA
     Route: 048
     Dates: start: 20120814, end: 20130428
  39. XYLOMETAZOLINE HYDROCHLORIDE [Concomitant]
     Indication: SEASONAL ALLERGY
     Route: 048
     Dates: start: 20120814, end: 20130228
  40. FLUTICASONE FUROATE [Concomitant]
     Indication: CHRONIC OBSTRUCTIVE PULMONARY DISEASE
     Dates: start: 2010
  41. NITE-TIME COLD MEDICINE [Concomitant]
     Indication: SEASONAL ALLERGY
     Route: 048
     Dates: start: 20130212, end: 20130228
  42. AMOXIL /00249601/ [Concomitant]
  43. GABAPENTIN [Concomitant]

REACTIONS (8)
  - Hyponatraemia [Recovered/Resolved]
  - Confusional state [Unknown]
  - Asthenia [Unknown]
  - Hypomagnesaemia [Recovered/Resolved]
  - Urinary tract infection [Recovered/Resolved]
  - Diarrhoea [Unknown]
  - Anaemia [Not Recovered/Not Resolved]
  - Blood creatinine increased [Not Recovered/Not Resolved]
